FAERS Safety Report 10274624 (Version 1)
Quarter: 2014Q3

REPORT INFORMATION
  Report Type: Report from Study
  Country: US (occurrence: US)
  Receive Date: 20140702
  Receipt Date: 20140702
  Transmission Date: 20150326
  Serious: Yes (Hospitalization)
  Sender: FDA-Public Use
  Company Number: US-ABBVIE-14P-163-1251679-00

PATIENT
  Age: 23 Year
  Sex: Female
  Weight: 59.02 kg

DRUGS (2)
  1. PROPRANOLOL [Concomitant]
     Active Substance: PROPRANOLOL\PROPRANOLOL HYDROCHLORIDE
     Indication: HEART RATE IRREGULAR
  2. HUMIRA [Suspect]
     Active Substance: ADALIMUMAB
     Indication: PSORIASIS
     Dates: start: 201302, end: 20140310

REACTIONS (5)
  - Adnexa uteri pain [Recovered/Resolved]
  - Ovarian haemorrhage [Recovered/Resolved]
  - Fallopian tube cyst [Recovered/Resolved]
  - Arthralgia [Not Recovered/Not Resolved]
  - Fallopian tube obstruction [Recovered/Resolved]

NARRATIVE: CASE EVENT DATE: 201403
